FAERS Safety Report 10184351 (Version 1)
Quarter: 2014Q2

REPORT INFORMATION
  Report Type: Spontaneous
  Country: US (occurrence: US)
  Receive Date: 20140520
  Receipt Date: 20140520
  Transmission Date: 20141212
  Serious: No
  Sender: FDA-Public Use
  Company Number: US-009507513-1405USA007283

PATIENT
  Sex: Male

DRUGS (3)
  1. PEGINTRON [Suspect]
     Indication: HEPATITIS C
     Dosage: 120MCG/5ML,WEEKLY
     Route: 058
     Dates: start: 201404
  2. RIBAPAK [Suspect]
  3. SOVALDI [Suspect]

REACTIONS (4)
  - Injection site reaction [Unknown]
  - Change of bowel habit [Unknown]
  - Urine output increased [Unknown]
  - Fatigue [Unknown]
